FAERS Safety Report 8762373 (Version 4)
Quarter: 2014Q1

REPORT INFORMATION
  Report Type: Spontaneous
  Country: US (occurrence: US)
  Receive Date: 20120830
  Receipt Date: 20140303
  Transmission Date: 20141002
  Serious: No
  Sender: FDA-Public Use
  Company Number: US-ASTRAZENECA-2012SE49441

PATIENT
  Age: 61 Year
  Sex: Female

DRUGS (2)
  1. NEXIUM [Suspect]
     Route: 048
  2. PRILOSEC [Suspect]
     Route: 048

REACTIONS (6)
  - Pain [Unknown]
  - Adverse event [Unknown]
  - Gastrooesophageal reflux disease [Unknown]
  - Swelling [Unknown]
  - Drug dose omission [Unknown]
  - Drug ineffective [Unknown]
